FAERS Safety Report 21392312 (Version 1)
Quarter: 2022Q3

REPORT INFORMATION
  Report Type: Spontaneous
  Country: CA (occurrence: None)
  Receive Date: 20220929
  Receipt Date: 20220929
  Transmission Date: 20221026
  Serious: Yes (Life-Threatening)
  Sender: FDA-Public Use
  Company Number: 2022A330118

PATIENT
  Age: 50 Year
  Sex: Female
  Weight: 47.6 kg

DRUGS (2)
  1. QUETIAPINE [Suspect]
     Active Substance: QUETIAPINE
     Indication: Sleep disorder
     Route: 048
  2. QUETIAPINE [Suspect]
     Active Substance: QUETIAPINE
     Indication: Antidepressant therapy
     Route: 048

REACTIONS (6)
  - Gastric pH decreased [Unknown]
  - Homicidal ideation [Unknown]
  - Kidney infection [Unknown]
  - Mental disorder [Unknown]
  - Renal pain [Unknown]
  - Suicidal ideation [Unknown]
